FAERS Safety Report 17683544 (Version 1)
Quarter: 2020Q2

REPORT INFORMATION
  Report Type: Spontaneous
  Country: IT (occurrence: IT)
  Receive Date: 20200420
  Receipt Date: 20200420
  Transmission Date: 20200714
  Serious: Yes (Hospitalization)
  Sender: FDA-Public Use
  Company Number: IT-TEVA-2020-IT-1225219

PATIENT
  Age: 53 Year
  Sex: Male
  Weight: 58 kg

DRUGS (9)
  1. CARDICOR [Concomitant]
     Active Substance: BISOPROLOL
  2. AVASTIN [Suspect]
     Active Substance: BEVACIZUMAB
     Indication: RECTAL ADENOCARCINOMA
     Dosage: 285 MG
     Route: 042
     Dates: start: 20191221, end: 20200130
  3. CARDIOASPIRIN [Concomitant]
     Active Substance: ASPIRIN
  4. PANTOPRAZOLE [Concomitant]
     Active Substance: PANTOPRAZOLE
  5. TIORFIX [Concomitant]
  6. FLUOROURACILE TEVA [Suspect]
     Active Substance: FLUOROURACIL
     Indication: RECTAL ADENOCARCINOMA
     Dosage: 2289 MG
     Route: 042
     Dates: start: 20191221, end: 20200130
  7. LEVOLEUCOVORIN. [Concomitant]
     Active Substance: LEVOLEUCOVORIN
     Dosage: 190 MG
  8. TACHIPIRINA [Concomitant]
     Active Substance: ACETAMINOPHEN
  9. DUROGESIC 25 MICROGRAMMI/ORA CEROTTO TRANSDERMICO [Concomitant]
     Active Substance: FENTANYL

REACTIONS (3)
  - Hyperamylasaemia [Recovering/Resolving]
  - Hypertransaminasaemia [Recovering/Resolving]
  - Hyperlipasaemia [Recovering/Resolving]

NARRATIVE: CASE EVENT DATE: 20200108
